FAERS Safety Report 13399834 (Version 1)
Quarter: 2017Q2

REPORT INFORMATION
  Report Type: Spontaneous
  Country: US (occurrence: US)
  Receive Date: 20170404
  Receipt Date: 20170404
  Transmission Date: 20170830
  Serious: No
  Sender: FDA-Public Use
  Company Number: None

PATIENT

DRUGS (1)
  1. AUGMENTIN [Suspect]
     Active Substance: AMOXICILLIN\CLAVULANATE POTASSIUM

REACTIONS (5)
  - Dyspnoea [None]
  - Drug dispensing error [None]
  - Drug prescribing error [None]
  - Drug monitoring procedure not performed [None]
  - Documented hypersensitivity to administered product [None]
